FAERS Safety Report 5466556-5 (Version None)
Quarter: 2007Q3

REPORT INFORMATION
  Report Type: 
  Country: None (occurrence: None)
  Receive Date: 20070820
  Receipt Date: 20070612
  Transmission Date: 20080115
  Serious: No
  Sender: FDA-Public Use
  Company Number: WAES 0706USA02049

PATIENT
  Age: 50 Year
  Sex: Male

DRUGS (5)
  1. JANUVIA [Suspect]
     Indication: DIABETES MELLITUS
     Dosage: 100 MG DAILY PO
     Route: 048
     Dates: start: 20061101
  2. ADVAIR DISKUS 100/50 [Concomitant]
  3. ALTACE [Concomitant]
  4. LASIX [Concomitant]
  5. THERAPY UNSPECIFIED [Concomitant]

REACTIONS (1)
  - HYPOGLYCAEMIA [None]
